FAERS Safety Report 16335301 (Version 1)
Quarter: 2019Q2

REPORT INFORMATION
  Report Type: Spontaneous
  Country: GB (occurrence: GB)
  Receive Date: 20190521
  Receipt Date: 20190521
  Transmission Date: 20190711
  Serious: Yes (Death)
  Sender: FDA-Public Use
  Company Number: GB-ROCHE-2317106

PATIENT
  Age: 18 Month
  Sex: Male

DRUGS (3)
  1. PARALDEHYDE [Concomitant]
     Active Substance: PARALDEHYDE
  2. DIAZEPAM. [Suspect]
     Active Substance: DIAZEPAM
     Indication: PRODUCT USED FOR UNKNOWN INDICATION
     Route: 065
  3. DEBENDOX [DICYCLOMINE\DOXYLAMINE\PYRIDOXINE] [Suspect]
     Active Substance: DICYCLOMINE\DOXYLAMINE\PYRIDOXINE
     Indication: PRODUCT USED FOR UNKNOWN INDICATION
     Route: 048

REACTIONS (2)
  - Respiratory arrest [Fatal]
  - Cardiac arrest [Fatal]
